FAERS Safety Report 9152444 (Version 1)
Quarter: 2013Q1

REPORT INFORMATION
  Report Type: Spontaneous
  Country: PT (occurrence: PT)
  Receive Date: 20130308
  Receipt Date: 20130308
  Transmission Date: 20140127
  Serious: Yes (Hospitalization)
  Sender: FDA-Public Use
  Company Number: PT-009507513-1303PRT003147

PATIENT
  Age: 30 Month
  Sex: Male

DRUGS (2)
  1. SINGULAIR [Suspect]
     Indication: WHEEZING
     Dosage: UNK
     Route: 048
     Dates: start: 2013, end: 20130226
  2. SINGULAIR [Suspect]
     Dosage: UNK
     Route: 048
     Dates: start: 2012

REACTIONS (1)
  - Febrile convulsion [Recovered/Resolved]
